FAERS Safety Report 9376855 (Version 1)
Quarter: 2013Q3

REPORT INFORMATION
  Report Type: Spontaneous
  Country: US (occurrence: US)
  Receive Date: 20130701
  Receipt Date: 20130701
  Transmission Date: 20140515
  Serious: No
  Sender: FDA-Public Use
  Company Number: US-PFIZER INC-2013194413

PATIENT
  Sex: Female

DRUGS (2)
  1. LYRICA [Suspect]
     Dosage: 150 MG, UNK
     Dates: start: 2013
  2. LYRICA [Suspect]
     Dosage: 75 MG, UNK
     Dates: start: 2013

REACTIONS (6)
  - Somnolence [Unknown]
  - Fatigue [Unknown]
  - Local swelling [Unknown]
  - Joint swelling [Unknown]
  - Dry mouth [Unknown]
  - Hyperhidrosis [Unknown]
